FAERS Safety Report 20644919 (Version 2)
Quarter: 2022Q2

REPORT INFORMATION
  Report Type: Spontaneous
  Country: US (occurrence: US)
  Receive Date: 20220328
  Receipt Date: 20220421
  Transmission Date: 20220721
  Serious: No
  Sender: FDA-Public Use
  Company Number: US-PFIZER INC-202200456350

PATIENT
  Age: 70 Year
  Sex: Female
  Weight: 59.42 kg

DRUGS (1)
  1. IBRANCE [Suspect]
     Active Substance: PALBOCICLIB
     Indication: Breast cancer metastatic
     Dosage: 125 UG, DAILY (125MCG, EVERY DAY FOR THREE WEEKS)

REACTIONS (4)
  - Glossodynia [Unknown]
  - Stomatitis [Unknown]
  - Oral herpes [Unknown]
  - Wrong dose [Unknown]
